FAERS Safety Report 18108922 (Version 3)
Quarter: 2020Q4

REPORT INFORMATION
  Report Type: Spontaneous
  Country: US (occurrence: US)
  Receive Date: 20200804
  Receipt Date: 20201014
  Transmission Date: 20210113
  Serious: No
  Sender: FDA-Public Use
  Company Number: US-PFIZER INC-2020290933

PATIENT
  Age: 65 Year
  Sex: Male
  Weight: 120.2 kg

DRUGS (3)
  1. LYRICA [Suspect]
     Active Substance: PREGABALIN
     Indication: NEUROPATHY PERIPHERAL
     Dosage: 50 MG, 2X/DAY
  2. LYRICA [Suspect]
     Active Substance: PREGABALIN
     Dosage: 50 MG, 3X/DAY (THREE TIMES A DAY, EVERY 6-8 HOURS)
  3. LYRICA [Suspect]
     Active Substance: PREGABALIN
     Dosage: 50 MG, 3X/DAY (THREE TIMES A DAY, EVERY 6-8 HOURS)
     Route: 048

REACTIONS (1)
  - Therapeutic product effect decreased [Unknown]
